FAERS Safety Report 6771892-6 (Version None)
Quarter: 2010Q2

REPORT INFORMATION
  Report Type: 
  Country: None (occurrence: None)
  Receive Date: 20100616
  Receipt Date: 20090915
  Transmission Date: 20101027
  Serious: No
  Sender: FDA-Public Use
  Company Number: US-ASTRAZENECA-2009SE13713

PATIENT
  Sex: Male
  Weight: 81.6 kg

DRUGS (7)
  1. ENTOCORT EC CAPSULES [Suspect]
     Indication: COLITIS
     Route: 048
     Dates: start: 20070101
  2. CARVEDILOL [Concomitant]
  3. AMLODIPINE [Concomitant]
  4. CALCIUM CARBONATE [Concomitant]
  5. POTASSIUM [Concomitant]
  6. FISH OIL [Concomitant]
  7. LOMOTIL [Concomitant]

REACTIONS (5)
  - ASTHENIA [None]
  - CONTUSION [None]
  - FATIGUE [None]
  - HAEMORRHAGE [None]
  - SKIN ATROPHY [None]
